FAERS Safety Report 10214509 (Version 2)
Quarter: 2014Q2

REPORT INFORMATION
  Report Type: Spontaneous
  Country: US (occurrence: US)
  Receive Date: 20140603
  Receipt Date: 20140603
  Transmission Date: 20141212
  Serious: Yes (Death)
  Sender: FDA-Public Use
  Company Number: US-GLAXOSMITHKLINE-A0003193A

PATIENT
  Age: 41 Year
  Sex: Female
  Weight: 49.44 kg

DRUGS (6)
  1. IMITREX [Suspect]
     Indication: MIGRAINE
     Dosage: 6MG SINGLE DOSE
     Route: 058
     Dates: start: 19940204, end: 19940204
  2. ASPIRIN [Concomitant]
     Indication: TRANSIENT ISCHAEMIC ATTACK
  3. PROVENTIL [Concomitant]
     Indication: ASTHMA
  4. XANAX [Concomitant]
     Indication: CHEST DISCOMFORT
     Route: 048
  5. DARVOCET-N [Concomitant]
     Route: 048
     Dates: start: 19940130
  6. VICODIN [Concomitant]

REACTIONS (12)
  - Cardio-respiratory arrest [Fatal]
  - Anaphylactic reaction [Fatal]
  - Arteriospasm coronary [Fatal]
  - Ventricular tachycardia [Unknown]
  - Nausea [Unknown]
  - Vomiting [Unknown]
  - Chest pain [Unknown]
  - Hypotension [Unknown]
  - Dyspnoea [Unknown]
  - Hyperhidrosis [Unknown]
  - Dyskinesia [Unknown]
  - Feeling hot [Unknown]
